FAERS Safety Report 15051988 (Version 3)
Quarter: 2018Q4

REPORT INFORMATION
  Report Type: Spontaneous
  Country: US (occurrence: US)
  Receive Date: 20180622
  Receipt Date: 20181218
  Transmission Date: 20190204
  Serious: Yes (Disabling)
  Sender: FDA-Public Use
  Company Number: US-OTSUKA-2018_016469

PATIENT
  Sex: Female

DRUGS (5)
  1. ABILIFY [Suspect]
     Active Substance: ARIPIPRAZOLE
     Dosage: 15 MG, QD
     Route: 065
  2. ABILIFY [Suspect]
     Active Substance: ARIPIPRAZOLE
     Indication: BIPOLAR DISORDER
     Dosage: 10 MG, QD
     Route: 065
     Dates: start: 200906
  3. ARIPIPRAZOLE. [Concomitant]
     Active Substance: ARIPIPRAZOLE
     Indication: PRODUCT USED FOR UNKNOWN INDICATION
     Dosage: UNK
     Route: 065
     Dates: start: 20150528
  4. LAMICTAL [Concomitant]
     Active Substance: LAMOTRIGINE
     Indication: PRODUCT USED FOR UNKNOWN INDICATION
     Dosage: 200 MG, QD
     Route: 048
  5. ABILIFY [Suspect]
     Active Substance: ARIPIPRAZOLE
     Dosage: 30 MG, QD
     Route: 065

REACTIONS (13)
  - Pain [Unknown]
  - Economic problem [Unknown]
  - Mental disorder [Unknown]
  - Social problem [Unknown]
  - Anxiety [Unknown]
  - Injury [Unknown]
  - Emotional distress [Unknown]
  - Disability [Unknown]
  - Fear [Unknown]
  - Gambling disorder [Recovered/Resolved]
  - Anhedonia [Unknown]
  - Condition aggravated [Recovered/Resolved]
  - Personal relationship issue [Unknown]

NARRATIVE: CASE EVENT DATE: 2010
